FAERS Safety Report 7971117-X (Version None)
Quarter: 2011Q4

REPORT INFORMATION
  Report Type: 
  Country: None (occurrence: None)
  Receive Date: 20111212
  Receipt Date: 20111212
  Transmission Date: 20120403
  Serious: Yes (Other)
  Sender: FDA-Public Use
  Company Number: None

PATIENT
  Age: 51 Year
  Sex: Female
  Weight: 63.502 kg

DRUGS (1)
  1. ALPRAZOLAM [Suspect]
     Indication: TACHYCARDIA
     Dosage: .25 MG
     Route: 048
     Dates: start: 20111016, end: 20111028

REACTIONS (5)
  - SUICIDAL IDEATION [None]
  - THINKING ABNORMAL [None]
  - MUSCLE SPASMS [None]
  - MUSCLE TWITCHING [None]
  - IRRITABILITY [None]
